FAERS Safety Report 10176964 (Version 1)
Quarter: 2014Q2

REPORT INFORMATION
  Report Type: Spontaneous
  Country: US (occurrence: None)
  Receive Date: 20140515
  Receipt Date: 20140515
  Transmission Date: 20141212
  Serious: Yes (Other)
  Sender: FDA-Public Use
  Company Number: None

PATIENT
  Age: 42 Year
  Sex: Male
  Weight: 90.72 kg

DRUGS (1)
  1. LEVAQUIN [Suspect]
     Dosage: 1 PILL FOR 10 DAYS ONCE DAILY
     Route: 048

REACTIONS (32)
  - Paraesthesia [None]
  - Hypoaesthesia [None]
  - Pain [None]
  - Pain [None]
  - Paraesthesia [None]
  - Asthenia [None]
  - Muscle twitching [None]
  - Tremor [None]
  - Muscle spasms [None]
  - Dizziness [None]
  - Malaise [None]
  - Insomnia [None]
  - Headache [None]
  - Agitation [None]
  - Anxiety [None]
  - Panic attack [None]
  - Disorientation [None]
  - Disturbance in attention [None]
  - Memory impairment [None]
  - Confusional state [None]
  - Depersonalisation [None]
  - Myalgia [None]
  - Joint swelling [None]
  - Pain [None]
  - Tendon pain [None]
  - Visual impairment [None]
  - Hearing impaired [None]
  - Tinnitus [None]
  - Tachycardia [None]
  - Dyspnoea [None]
  - Hypertension [None]
  - Palpitations [None]
